FAERS Safety Report 24652062 (Version 2)
Quarter: 2024Q4

REPORT INFORMATION
  Report Type: Spontaneous
  Country: FR (occurrence: FR)
  Receive Date: 20241122
  Receipt Date: 20241205
  Transmission Date: 20250115
  Serious: Yes (Hospitalization)
  Sender: ALK-ABELLO
  Company Number: FR-ALK-ABELLO A/S-2024AA004339

PATIENT

DRUGS (1)
  1. ACARIZAX [Suspect]
     Active Substance: DERMATOPHAGOIDES FARINAE\DERMATOPHAGOIDES PTERONYSSINUS
     Indication: Mite allergy
     Dosage: 12 SQ-HDM, QD
     Route: 060
     Dates: start: 20241009, end: 20241109

REACTIONS (7)
  - Aphthous ulcer [Recovered/Resolved]
  - Skin reaction [Recovered/Resolved]
  - Abdominal pain [Recovered/Resolved]
  - Oesophageal discomfort [Recovered/Resolved]
  - Palpitations [Recovered/Resolved]
  - Lymphocyte count increased [Recovered/Resolved]
  - Presyncope [Recovered/Resolved]

NARRATIVE: CASE EVENT DATE: 20241001
